FAERS Safety Report 4490281-0 (Version None)
Quarter: 2004Q4

REPORT INFORMATION
  Report Type: 
  Country: None (occurrence: None)
  Receive Date: 20041101
  Receipt Date: 20041002
  Transmission Date: 20050328
  Serious: Yes (Death, Life-Threatening, Hospitalization)
  Sender: FDA-Public Use
  Company Number: BR-MERCK-0410BRA00075

PATIENT
  Age: 61 Year
  Sex: Female

DRUGS (3)
  1. VIOXX [Suspect]
     Indication: BACK PAIN
     Route: 048
     Dates: start: 20010701, end: 20010701
  2. INSULIN [Concomitant]
     Indication: DIABETES MELLITUS
     Route: 065
  3. [THERAPY UNSPECIFIED] [Concomitant]
     Indication: HYPERTENSION
     Route: 065

REACTIONS (6)
  - CEREBROVASCULAR ACCIDENT [None]
  - COMA [None]
  - GASTRIC ULCER PERFORATION [None]
  - GUILLAIN-BARRE SYNDROME [None]
  - HALLUCINATION [None]
  - MENINGITIS [None]
